FAERS Safety Report 7805049-4 (Version None)
Quarter: 2011Q4

REPORT INFORMATION
  Report Type: 
  Country: None (occurrence: None)
  Receive Date: 20111010
  Receipt Date: 20110524
  Transmission Date: 20120403
  Serious: Yes (Hospitalization)
  Sender: FDA-Public Use
  Company Number: JP-GLAXOSMITHKLINE-B0722009A

PATIENT
  Sex: Male

DRUGS (2)
  1. FLUTICASONE PROPIONATE/SALMETEROL [Suspect]
     Indication: EMPHYSEMA
     Dosage: 500MCG PER DAY
     Route: 055
     Dates: start: 20091007, end: 20100809
  2. THEO-DUR [Concomitant]
     Indication: EMPHYSEMA
     Dosage: 400MG PER DAY
     Route: 048
     Dates: start: 20100402, end: 20100810

REACTIONS (5)
  - BRONCHOPNEUMONIA [None]
  - ALANINE AMINOTRANSFERASE INCREASED [None]
  - ASPARTATE AMINOTRANSFERASE INCREASED [None]
  - CARDIAC FAILURE [None]
  - BLOOD LACTATE DEHYDROGENASE INCREASED [None]
